FAERS Safety Report 21768583 (Version 1)
Quarter: 2022Q4

REPORT INFORMATION
  Report Type: Report from Study
  Country: US (occurrence: US)
  Receive Date: 20221222
  Receipt Date: 20221222
  Transmission Date: 20230112
  Serious: No
  Sender: FDA-Public Use
  Company Number: US-ABBVIE-4195903

PATIENT
  Sex: Female

DRUGS (1)
  1. HUMIRA [Suspect]
     Active Substance: ADALIMUMAB
     Indication: Crohn^s disease
     Dosage: 40MG/0.4ML CITRATE FREE
     Route: 058

REACTIONS (9)
  - General symptom [Recovered/Resolved]
  - Crohn^s disease [Not Recovered/Not Resolved]
  - Nausea [Not Recovered/Not Resolved]
  - Pain in extremity [Recovered/Resolved]
  - Headache [Not Recovered/Not Resolved]
  - Vision blurred [Not Recovered/Not Resolved]
  - Chest discomfort [Unknown]
  - Dyspnoea [Unknown]
  - Migraine [Not Recovered/Not Resolved]
